FAERS Safety Report 4495699-8 (Version None)
Quarter: 2004Q4

REPORT INFORMATION
  Report Type: 
  Country: None (occurrence: None)
  Receive Date: 20041108
  Receipt Date: 20041019
  Transmission Date: 20050328
  Serious: Yes (Hospitalization)
  Sender: FDA-Public Use
  Company Number: NZ-MERCK-0410NZL00096

PATIENT
  Age: 75 Year
  Sex: Female
  Weight: 65 kg

DRUGS (8)
  1. VIOXX [Suspect]
     Indication: ARTHRITIS
     Route: 048
     Dates: start: 20040102, end: 20040402
  2. BETALOC [Concomitant]
     Indication: HYPERTENSION
     Route: 065
  3. ACETAMINOPHEN [Concomitant]
     Route: 048
  4. BENDROFLUAZIDE TABLETS [Concomitant]
     Indication: FLUID RETENTION
     Route: 065
  5. LOSEC (OMEPRAZOLE MAGNESIUM) [Concomitant]
     Indication: DYSPEPSIA
     Route: 065
  6. CALCIUM (UNSPECIFIED) [Concomitant]
     Indication: OSTEOPOROSIS
     Route: 065
  7. ENALAPRIL MALEATE [Concomitant]
     Route: 065
  8. LIPEX [Concomitant]
     Indication: BLOOD CHOLESTEROL INCREASED
     Route: 065

REACTIONS (1)
  - MYOCARDIAL INFARCTION [None]
